FAERS Safety Report 13048380 (Version 1)
Quarter: 2016Q4

REPORT INFORMATION
  Report Type: Spontaneous
  Country: US (occurrence: US)
  Receive Date: 20161220
  Receipt Date: 20161220
  Transmission Date: 20170207
  Serious: No
  Sender: FDA-Public Use
  Company Number: US-SHIRE-US201619830

PATIENT
  Age: 29 Year
  Sex: Female
  Weight: 90.7 kg

DRUGS (3)
  1. XIIDRA [Suspect]
     Active Substance: LIFITEGRAST
     Indication: DRY EYE
     Dosage: 1 GTT (IN BOTH EYES), 2X/DAY:BID
     Route: 047
     Dates: start: 20161110
  2. ARTIFICIAL TEARS                   /00222401/ [Concomitant]
     Indication: INSTILLATION SITE PAIN
     Dosage: UNK, UNKNOWN
     Route: 047
  3. ARTIFICIAL TEARS                   /00222401/ [Concomitant]
     Indication: INSTILLATION SITE PRURITUS

REACTIONS (3)
  - Instillation site pruritus [Not Recovered/Not Resolved]
  - Instillation site pain [Not Recovered/Not Resolved]
  - Instillation site reaction [Not Recovered/Not Resolved]

NARRATIVE: CASE EVENT DATE: 20161130
